FAERS Safety Report 19556429 (Version 2)
Quarter: 2021Q3

REPORT INFORMATION
  Report Type: Report from Study
  Country: US (occurrence: US)
  Receive Date: 20210714
  Receipt Date: 20210930
  Transmission Date: 20211014
  Serious: Yes (Hospitalization)
  Sender: FDA-Public Use
  Company Number: US-EMD SERONO-9250985

PATIENT
  Age: 50 Year
  Sex: Female

DRUGS (3)
  1. COVID?19 VACCINE [Concomitant]
     Indication: COVID-19 IMMUNISATION
     Dosage: FIRST DOSE
     Dates: start: 202102
  2. MAVENCLAD [Suspect]
     Active Substance: CLADRIBINE
     Indication: MULTIPLE SCLEROSIS
     Dosage: PATIENT HAD A CUMULATIVE DOSE OF 120MG OF MAVENCLAD AS OF 08 JUL 2021
     Route: 048
     Dates: start: 20191129
  3. COVID?19 VACCINE [Concomitant]
     Dosage: SECOND DOSE
     Dates: start: 202103

REACTIONS (1)
  - Pneumonia [Recovering/Resolving]

NARRATIVE: CASE EVENT DATE: 2021
